FAERS Safety Report 8090424-6 (Version None)
Quarter: 2012Q1

REPORT INFORMATION
  Report Type: 
  Country: None (occurrence: None)
  Receive Date: 20120129
  Receipt Date: 20111130
  Transmission Date: 20120608
  Serious: No
  Sender: FDA-Public Use
  Company Number: US-ABBOTT-11P-163-0879772-00

PATIENT
  Sex: Female
  Weight: 53.118 kg

DRUGS (3)
  1. MEDROL [Concomitant]
     Indication: PRODUCT USED FOR UNKNOWN INDICATION
  2. TOPAMAX [Concomitant]
     Indication: PRODUCT USED FOR UNKNOWN INDICATION
  3. HUMIRA [Suspect]
     Indication: RHEUMATOID ARTHRITIS
     Route: 058
     Dates: start: 20110901

REACTIONS (4)
  - CANDIDIASIS [None]
  - HEPATIC ENZYME INCREASED [None]
  - EXPOSURE TO COMMUNICABLE DISEASE [None]
  - INJECTION SITE PAPULE [None]
